FAERS Safety Report 6664711-X (Version None)
Quarter: 2010Q1

REPORT INFORMATION
  Report Type: 
  Country: None (occurrence: None)
  Receive Date: 20100330
  Receipt Date: 20100330
  Transmission Date: 20100710
  Serious: Yes (Life-Threatening, Hospitalization)
  Sender: FDA-Public Use
  Company Number: 6057746

PATIENT
  Age: 87 Year
  Sex: Male

DRUGS (8)
  1. CARDENSIEL 2.5 MG (2.5 MG, TABLET) (BISOPROLOL) [Suspect]
     Indication: DRUG USE FOR UNKNOWN INDICATION
     Dosage: 1 DOSAGE FORMS 1 IN 1 D) ORAL
     Route: 048
  2. LEVOTHYROXINE SODIUM [Concomitant]
     Indication: DRUG USE FOR UNKNOWN INDICATION
  3. ACTILYSE (20 MG, SOLUTION FOR INJECTION) (ALTEPLASE) [Suspect]
     Indication: THROMBOLYSIS
     Dosage: 55 MG
     Route: 042
     Dates: start: 20091210, end: 20091210
  4. TAHOR (10 MG, TABLET) (ATORVASTATIN) [Suspect]
     Dosage: 1 DOSAGE
     Route: 048
  5. COVERSYL (2.5 MG, TABLET ) PERINOPRIL) [Concomitant]
  6. KARDEGIC (7.5 MG , POWDER FOR ORAL SOLUTION) SCETYLSALICYLATE LYSINE) [Concomitant]
  7. MOPRAL (CAPSULE) (OMEPRAZOLE) [Concomitant]
  8. BETASERC (24 MG, TABLET) (BETHAHISTINE) [Concomitant]

REACTIONS (6)
  - APHASIA [None]
  - BRAIN HERNIATION [None]
  - CEREBRAL ARTERY OCCLUSION [None]
  - CEREBRAL HAEMORRHAGE [None]
  - EYE MOVEMENT DISORDER [None]
  - HYPOAESTHESIA [None]
